FAERS Safety Report 14875595 (Version 1)
Quarter: 2018Q2

REPORT INFORMATION
  Report Type: Spontaneous
  Country: IN (occurrence: IN)
  Receive Date: 20180510
  Receipt Date: 20180510
  Transmission Date: 20180711
  Serious: Yes (Congenital Anomaly, Other)
  Sender: FDA-Public Use
  Company Number: IN-JNJFOC-20180508773

PATIENT

DRUGS (7)
  1. CLOBAZAM [Suspect]
     Active Substance: CLOBAZAM
     Indication: EPILEPSY
     Dosage: MOTHER DOSING
     Route: 064
  2. PHENYTOIN. [Suspect]
     Active Substance: PHENYTOIN
     Indication: EPILEPSY
     Dosage: MOTHER DOSING
     Route: 064
  3. VALPROATE [Suspect]
     Active Substance: VALPROIC ACID
     Indication: EPILEPSY
     Dosage: MOTHER DOSING
     Route: 064
  4. TOPIRAMATE. [Suspect]
     Active Substance: TOPIRAMATE
     Indication: EPILEPSY
     Dosage: MOTHER DOSING
     Route: 064
  5. OXCARBAZEPINE. [Suspect]
     Active Substance: OXCARBAZEPINE
     Indication: EPILEPSY
     Dosage: MOTHER DOSING
     Route: 064
  6. PHENOBARBITON [Suspect]
     Active Substance: PHENOBARBITAL
     Indication: EPILEPSY
     Dosage: MOTHER DOSING
     Route: 064
  7. CARBAMAZEPINE. [Suspect]
     Active Substance: CARBAMAZEPINE
     Indication: EPILEPSY
     Dosage: MOTHER DOSING
     Route: 064

REACTIONS (5)
  - Congenital musculoskeletal anomaly [Unknown]
  - Gastrointestinal malformation [Unknown]
  - Heart disease congenital [Unknown]
  - Kidney malformation [Unknown]
  - Foetal exposure during pregnancy [Recovered/Resolved]
